FAERS Safety Report 23788623 (Version 6)
Quarter: 2024Q3

REPORT INFORMATION
  Report Type: Spontaneous
  Country: US (occurrence: US)
  Receive Date: 20240426
  Receipt Date: 20240701
  Transmission Date: 20241016
  Serious: Yes (Other)
  Sender: PFIZER
  Company Number: US-PFIZER INC-PV202400054038

PATIENT
  Age: 56 Year
  Sex: Female
  Weight: 52.154 kg

DRUGS (2)
  1. PREMARIN [Suspect]
     Active Substance: ESTROGENS, CONJUGATED
     Indication: Oophorectomy
     Dosage: UNK
  2. PREMARIN [Suspect]
     Active Substance: ESTROGENS, CONJUGATED
     Indication: Hormone replacement therapy

REACTIONS (6)
  - Breast cancer stage III [Unknown]
  - Breast cancer recurrent [Recovering/Resolving]
  - Sepsis [Unknown]
  - Drug ineffective [Unknown]
  - Lymphoedema [Not Recovered/Not Resolved]
  - Discomfort [Not Recovered/Not Resolved]
